FAERS Safety Report 5393676-6 (Version None)
Quarter: 2007Q3

REPORT INFORMATION
  Report Type: 
  Country: None (occurrence: None)
  Receive Date: 20070723
  Receipt Date: 20070709
  Transmission Date: 20080115
  Serious: Yes (Other)
  Sender: FDA-Public Use
  Company Number: US-TYCO HEALTHCARE/MALLINCKRODT-T200700789

PATIENT

DRUGS (4)
  1. METHADOSE [Suspect]
     Indication: PAIN
  2. REBIF [Suspect]
     Indication: MULTIPLE SCLEROSIS
     Dosage: 44 UG, 3 TIMES A WEEK
     Route: 058
     Dates: start: 20060706, end: 20070501
  3. LISINOPRIL [Suspect]
     Indication: HYPERTENSION
     Dates: start: 20000101, end: 20070407
  4. CORTICOSTEROIDS [Concomitant]
     Dosage: ORAL AND INTRAVENOUS

REACTIONS (1)
  - HYPERSENSITIVITY [None]
